FAERS Safety Report 7716189-2 (Version None)
Quarter: 2011Q3

REPORT INFORMATION
  Report Type: 
  Country: None (occurrence: None)
  Receive Date: 20110823
  Receipt Date: 20110810
  Transmission Date: 20111222
  Serious: Yes (Hospitalization)
  Sender: FDA-Public Use
  Company Number: DSJ-2011-17041

PATIENT
  Age: 16 Year
  Sex: Male

DRUGS (3)
  1. NUROFEN (IBUPROFEN) (IBUPROFEN) [Concomitant]
  2. OFLOXACIN [Suspect]
     Indication: EAR INFECTION
     Dosage: 3 MG (1.5 MG,2 IN 1 D),AURICULAR
     Route: 001
     Dates: start: 20110222, end: 20110222
  3. TIAPROFENIC ACID (TIAPROFNIC ACID) (TIAPROFENIC ACID) [Suspect]
     Indication: EAR INFECTION
     Dosage: (2 IN 1 D),PER ORAL
     Route: 048
     Dates: start: 20110222, end: 20110222

REACTIONS (1)
  - ANAPHYLACTIC REACTION [None]
